FAERS Safety Report 24646417 (Version 1)
Quarter: 2024Q4

REPORT INFORMATION
  Report Type: Spontaneous
  Country: IL (occurrence: IL)
  Receive Date: 20241121
  Receipt Date: 20241121
  Transmission Date: 20250114
  Serious: Yes (Death, Hospitalization)
  Sender: Steriscience PTE
  Company Number: IL-STERISCIENCE B.V.-2024-ST-001931

PATIENT
  Age: 85 Year
  Sex: Male

DRUGS (3)
  1. MEROPENEM [Suspect]
     Active Substance: MEROPENEM
     Indication: Klebsiella infection
     Dosage: UNK
     Route: 042
     Dates: start: 2023, end: 2023
  2. ERTAPENEM [Suspect]
     Active Substance: ERTAPENEM
     Indication: Klebsiella infection
     Dosage: UNK
     Dates: start: 2023, end: 2023
  3. ERTAPENEM [Suspect]
     Active Substance: ERTAPENEM
     Dosage: UNK
     Dates: start: 2023

REACTIONS (1)
  - Drug resistance [Fatal]
